FAERS Safety Report 6224522-6 (Version None)
Quarter: 2009Q2

REPORT INFORMATION
  Report Type: 
  Country: None (occurrence: None)
  Receive Date: 20090612
  Receipt Date: 20090320
  Transmission Date: 20091009
  Serious: No
  Sender: FDA-Public Use
  Company Number: US-ABBOTT-09P-163-0563890-00

PATIENT
  Sex: Male
  Weight: 77.634 kg

DRUGS (6)
  1. HUMIRA [Suspect]
     Indication: CROHN'S DISEASE
     Route: 058
     Dates: start: 20090319, end: 20090319
  2. PENTASA [Concomitant]
     Indication: CROHN'S DISEASE
  3. ULTRAM [Concomitant]
     Indication: PAIN
  4. BENO [Concomitant]
     Indication: DRUG USE FOR UNKNOWN INDICATION
  5. DENDONNA [Concomitant]
     Indication: PAIN
  6. BUDESONIDE [Concomitant]
     Indication: DRUG USE FOR UNKNOWN INDICATION

REACTIONS (1)
  - INCORRECT DOSE ADMINISTERED [None]
